FAERS Safety Report 21142786 (Version 9)
Quarter: 2022Q4

REPORT INFORMATION
  Report Type: Report from Study
  Country: TR (occurrence: None)
  Receive Date: 20220728
  Receipt Date: 20221225
  Transmission Date: 20230113
  Serious: Yes (Hospitalization)
  Sender: FDA-Public Use
  Company Number: TR-ROCHE-3036002

PATIENT
  Age: 67 Year
  Sex: Female
  Weight: 64.4 kg

DRUGS (39)
  1. TIRAGOLUMAB [Suspect]
     Active Substance: TIRAGOLUMAB
     Indication: Small cell lung cancer metastatic
     Dosage: ON 24/MAR/2022, MOST RECENT DOSE OF STUDY DRUG PRIOR TO AE/SAE?START DATE OF MOST RECENT DOSE OF STU
     Route: 042
     Dates: start: 20210308
  2. ATEZOLIZUMAB [Suspect]
     Active Substance: ATEZOLIZUMAB
     Indication: Small cell lung cancer metastatic
     Dosage: DOSE OF LAST STUDY DRUG ADMINISTERED PRIOR TO AE/SAE IS 1200 MG?ON 24/MAR/2022, MOST RECENT DOSE OF
     Route: 041
     Dates: start: 20210308
  3. CARBOPLATIN [Suspect]
     Active Substance: CARBOPLATIN
     Indication: Small cell lung cancer metastatic
     Dosage: DOSE LAST STUDY DRUG ADMIN PRIOR AE/SAE WAS 282 MG?ON 10/MAY/2021, MOST RECENT DOSE OF STUDY DRUG PR
     Route: 042
     Dates: start: 20210308
  4. ETOPOSIDE [Suspect]
     Active Substance: ETOPOSIDE
     Indication: Small cell lung cancer metastatic
     Dosage: DOSE LAST STUDY DRUG ADMIN PRIOR AE/SAE WAS 90 MG?ON 21/MAY/2021, MOST RECENT DOSE OF STUDY DRUG PRI
     Route: 042
     Dates: start: 20210308
  5. METFORMIN HYDROCHLORIDE [Concomitant]
     Active Substance: METFORMIN HYDROCHLORIDE
     Indication: Diabetes mellitus
     Route: 048
     Dates: start: 2011
  6. METOPROLOL [Concomitant]
     Active Substance: METOPROLOL
     Indication: Hypertension
     Route: 048
     Dates: start: 2011
  7. ASPIRIN [Concomitant]
     Active Substance: ASPIRIN
     Indication: Hypertension
     Route: 048
     Dates: start: 2011
  8. CIPRALEX [Concomitant]
     Active Substance: ESCITALOPRAM OXALATE
     Indication: Depression
     Route: 048
  9. ENALAPRIL MALEATE\LERCANIDIPINE HYDROCHLORIDE [Concomitant]
     Active Substance: ENALAPRIL MALEATE\LERCANIDIPINE HYDROCHLORIDE
     Indication: Hypertension
     Route: 048
     Dates: start: 2011
  10. LANSOPRAZOLE [Concomitant]
     Active Substance: LANSOPRAZOLE
     Route: 048
  11. ALOXI [Concomitant]
     Active Substance: PALONOSETRON HYDROCHLORIDE
     Indication: Premedication
     Route: 042
     Dates: start: 20210308
  12. DOLADAMON [Concomitant]
     Indication: Myalgia
     Route: 048
     Dates: start: 20210805
  13. LEVOTHYROXINE SODIUM [Concomitant]
     Active Substance: LEVOTHYROXINE SODIUM
     Indication: Hypothyroidism
     Route: 048
     Dates: start: 20210916
  14. DERMABEL [BETAMETHASONE] [Concomitant]
     Indication: Rash
     Route: 061
     Dates: start: 20210916
  15. BEMIKS [Concomitant]
     Route: 042
     Dates: start: 20220211, end: 20220211
  16. CYANOCOBALAMIN [Concomitant]
     Active Substance: CYANOCOBALAMIN
     Dosage: 1000 OTHER
     Route: 042
     Dates: start: 20220211, end: 20220211
  17. LOSEC [Concomitant]
     Active Substance: OMEPRAZOLE
     Indication: Dyspnoea
     Dates: start: 20220711, end: 20220716
  18. LOSEC [Concomitant]
     Active Substance: OMEPRAZOLE
     Dates: start: 20220525, end: 20220602
  19. LOSEC [Concomitant]
     Active Substance: OMEPRAZOLE
     Dates: start: 20220722, end: 20220727
  20. PREDNOL-L [Concomitant]
     Indication: Dyspnoea
     Route: 042
     Dates: start: 20220711, end: 20220713
  21. COMBIVENT [Concomitant]
     Active Substance: ALBUTEROL SULFATE\IPRATROPIUM BROMIDE
     Indication: Dyspnoea
     Dates: start: 20220711, end: 20220717
  22. COMBIVENT [Concomitant]
     Active Substance: ALBUTEROL SULFATE\IPRATROPIUM BROMIDE
     Dates: start: 20220525, end: 20220602
  23. COMBIVENT [Concomitant]
     Active Substance: ALBUTEROL SULFATE\IPRATROPIUM BROMIDE
     Dates: start: 20220722, end: 20220728
  24. COMBIVENT [Concomitant]
     Active Substance: ALBUTEROL SULFATE\IPRATROPIUM BROMIDE
     Dates: start: 20220220, end: 20220224
  25. MEROPENEM [Concomitant]
     Active Substance: MEROPENEM
     Indication: Dyspnoea
     Dates: start: 20220711, end: 20220717
  26. MEROPENEM [Concomitant]
     Active Substance: MEROPENEM
     Dates: start: 20220722, end: 20220728
  27. ENOXAPARIN SODIUM [Concomitant]
     Active Substance: ENOXAPARIN SODIUM
     Indication: Dyspnoea
     Dates: start: 20220711, end: 20220715
  28. PAROL [Concomitant]
     Active Substance: ACETAMINOPHEN
     Indication: Dyspnoea
     Dates: start: 20220715, end: 20220715
  29. PAROL [Concomitant]
     Active Substance: ACETAMINOPHEN
     Dates: start: 20220525, end: 20220606
  30. DEKORT [Concomitant]
     Active Substance: DEXAMETHASONE
     Indication: Dyspnoea
     Dates: start: 20220713, end: 20220717
  31. TARGOCID [Concomitant]
     Active Substance: TEICOPLANIN
     Indication: Dyspnoea
     Dates: start: 20220716, end: 20220717
  32. TARGOCID [Concomitant]
     Active Substance: TEICOPLANIN
     Dates: start: 20220602, end: 20220605
  33. PROGAS [Concomitant]
     Indication: Dyspnoea
     Dates: start: 20220716, end: 20220717
  34. PROGAS [Concomitant]
     Dates: start: 20220602, end: 20220605
  35. DUPHALAC [Concomitant]
     Active Substance: LACTULOSE
     Indication: Dyspnoea
     Dates: start: 20220717, end: 20220717
  36. LOSEC [Concomitant]
     Active Substance: OMEPRAZOLE
     Indication: Dyspnoea
     Dates: start: 20220711, end: 20220716
  37. PULMICORT TURBUHALER [Concomitant]
     Active Substance: BUDESONIDE
     Indication: Dyspnoea
     Dates: start: 20220711, end: 20220717
  38. METOPROLOL SUCCINATE [Concomitant]
     Active Substance: METOPROLOL SUCCINATE
     Indication: Dyspnoea
     Dates: start: 20220711, end: 20220717
  39. DERMABEL (TURKEY) [Concomitant]
     Indication: Rash
     Route: 061
     Dates: start: 20210916

REACTIONS (2)
  - General physical health deterioration [Recovered/Resolved]
  - General physical health deterioration [Recovered/Resolved]

NARRATIVE: CASE EVENT DATE: 20220220
